FAERS Safety Report 15981015 (Version 1)
Quarter: 2019Q1

REPORT INFORMATION
  Report Type: Spontaneous
  Country: US (occurrence: US)
  Receive Date: 20190218
  Receipt Date: 20190218
  Transmission Date: 20190418
  Serious: Yes (Other)
  Sender: FDA-Public Use
  Company Number: None

PATIENT
  Age: 45 Year
  Sex: Female
  Weight: 48.15 kg

DRUGS (14)
  1. IBRANCE [Suspect]
     Active Substance: PALBOCICLIB
     Indication: BREAST CANCER
     Dosage: ?          OTHER FREQUENCY:DAILY -21 DAYS;?
     Route: 048
     Dates: start: 20171130, end: 20190218
  2. LORAZEPAM. [Concomitant]
     Active Substance: LORAZEPAM
  3. MEGNESIUM GLUCONATE [Concomitant]
  4. LORATIDINE [Concomitant]
     Active Substance: LORATADINE
  5. VITAMIN C [Concomitant]
     Active Substance: ASCORBIC ACID
  6. ALENDRONATE SODIUM. [Concomitant]
     Active Substance: ALENDRONATE SODIUM
  7. VITAMIN B COMPLEX [Concomitant]
     Active Substance: CYANOCOBALAMIN\DEXPANTHENOL\NIACINAMIDE\PYRIDOXINE HYDROCHLORIDE\RIBOFLAVIN 5^-PHOSPHATE SODIUM\THIAMINE HYDROCHLORIDE\VITAMIN B COMPLEX
  8. CALCIUM-MAGNESIUM-ZINC [Concomitant]
  9. GARLIC. [Concomitant]
     Active Substance: GARLIC
  10. VITAMIN D [Concomitant]
     Active Substance: CHOLECALCIFEROL
  11. ANASTRAZOLE [Concomitant]
     Active Substance: ANASTROZOLE
  12. MVI [Concomitant]
     Active Substance: VITAMINS
  13. TURMERIC [Concomitant]
     Active Substance: HERBALS\TURMERIC
  14. LETROZOLE. [Concomitant]
     Active Substance: LETROZOLE

REACTIONS (1)
  - Disease progression [None]

NARRATIVE: CASE EVENT DATE: 20190218
